FAERS Safety Report 23918344 (Version 1)
Quarter: 2024Q2

REPORT INFORMATION
  Report Type: Spontaneous
  Country: US (occurrence: US)
  Receive Date: 20240530
  Receipt Date: 20240530
  Transmission Date: 20240715
  Serious: Yes (Other)
  Sender: FDA-Public Use
  Company Number: US-TEVA-VS-3202326

PATIENT
  Sex: Female

DRUGS (4)
  1. IBUPROFEN [Suspect]
     Active Substance: IBUPROFEN
     Indication: Pain
     Route: 065
  2. MEGESTROL [Suspect]
     Active Substance: MEGESTROL
     Indication: Endometrial hyperplasia
     Route: 048
  3. MEDROXYPROGESTERONE [Suspect]
     Active Substance: MEDROXYPROGESTERONE
     Indication: Endometrial hyperplasia
     Route: 048
     Dates: end: 202405
  4. ACETAMINOPHEN [Suspect]
     Active Substance: ACETAMINOPHEN
     Indication: Pain
     Route: 065

REACTIONS (38)
  - Confusional state [Not Recovered/Not Resolved]
  - Abdominal pain [Unknown]
  - Somnolence [Not Recovered/Not Resolved]
  - Measles [Unknown]
  - Rash erythematous [Unknown]
  - Skin discolouration [Unknown]
  - Erythema [Unknown]
  - Swelling of eyelid [Unknown]
  - Eye swelling [Unknown]
  - Skin exfoliation [Not Recovered/Not Resolved]
  - Dysphonia [Unknown]
  - Dizziness [Unknown]
  - Decreased appetite [Unknown]
  - Asthenia [Unknown]
  - Weight decreased [Unknown]
  - Pain [Unknown]
  - Memory impairment [Not Recovered/Not Resolved]
  - Thinking abnormal [Unknown]
  - Drug hypersensitivity [Not Recovered/Not Resolved]
  - Muscle contracture [Unknown]
  - Back pain [Unknown]
  - Fatigue [Unknown]
  - Vision blurred [Not Recovered/Not Resolved]
  - Sedation [Unknown]
  - Lethargy [Not Recovered/Not Resolved]
  - Depression [Not Recovered/Not Resolved]
  - Lip swelling [Unknown]
  - Fatigue [Unknown]
  - Influenza like illness [Unknown]
  - Blister [Unknown]
  - Skin exfoliation [Unknown]
  - Blood glucose decreased [Unknown]
  - Insomnia [Unknown]
  - Endometrial hyperplasia [Unknown]
  - Skin mass [Unknown]
  - Asthenia [Not Recovered/Not Resolved]
  - Rash [Unknown]
  - Heavy menstrual bleeding [Unknown]

NARRATIVE: CASE EVENT DATE: 20231201
